FAERS Safety Report 20972959 (Version 3)
Quarter: 2022Q3

REPORT INFORMATION
  Report Type: Spontaneous
  Country: JP (occurrence: JP)
  Receive Date: 20220617
  Receipt Date: 20220804
  Transmission Date: 20221026
  Serious: Yes (Hospitalization, Other)
  Sender: FDA-Public Use
  Company Number: JP-NBI-J202210358BIPI

PATIENT
  Age: 43 Year
  Sex: Male

DRUGS (2)
  1. JARDIANCE [Suspect]
     Active Substance: EMPAGLIFLOZIN
     Indication: Type 2 diabetes mellitus
     Route: 048
     Dates: start: 202006
  2. RYBELSUS [Suspect]
     Active Substance: SEMAGLUTIDE
     Indication: Type 2 diabetes mellitus
     Route: 048
     Dates: start: 20220612, end: 20220615

REACTIONS (1)
  - Euglycaemic diabetic ketoacidosis [Recovered/Resolved]

NARRATIVE: CASE EVENT DATE: 20220612
